FAERS Safety Report 16326246 (Version 6)
Quarter: 2019Q4

REPORT INFORMATION
  Report Type: Spontaneous
  Country: US (occurrence: US)
  Receive Date: 20190517
  Receipt Date: 20191105
  Transmission Date: 20200122
  Serious: Yes (Hospitalization)
  Sender: FDA-Public Use
  Company Number: US-PFIZER INC-2019205535

PATIENT
  Age: 76 Year
  Sex: Male
  Weight: 61.22 kg

DRUGS (7)
  1. SPIRONOLACTONE. [Concomitant]
     Active Substance: SPIRONOLACTONE
     Dosage: 25 MG, 1X/DAY
  2. GREEN TEA EXTRACT [Concomitant]
     Dosage: 1200 MG, DAILY
     Dates: start: 201808
  3. TAFAMIDIS [Suspect]
     Active Substance: TAFAMIDIS MEGLUMINE
     Indication: CARDIAC AMYLOIDOSIS
  4. GREEN TEA EXTRACT [Concomitant]
     Dosage: 1200 MG, 2X/DAY
  5. TAFAMIDIS [Suspect]
     Active Substance: TAFAMIDIS MEGLUMINE
     Indication: CARDIAC AMYLOIDOSIS
     Dosage: 61 MG, 1X/DAY
     Dates: start: 201902
  6. LASIX [Concomitant]
     Active Substance: FUROSEMIDE
     Dosage: 60 MG, 2X/DAY (40 MG 1 AND HALF 2X/ DAY)
  7. ELIQUIS [Concomitant]
     Active Substance: APIXABAN
     Dosage: 2.5 MG, 2X/DAY

REACTIONS (1)
  - Fluid retention [Recovered/Resolved]

NARRATIVE: CASE EVENT DATE: 20190301
